FAERS Safety Report 5248677-5 (Version None)
Quarter: 2007Q1

REPORT INFORMATION
  Report Type: 
  Country: None (occurrence: None)
  Receive Date: 20070226
  Receipt Date: 20070226
  Transmission Date: 20070707
  Serious: Yes (Life-Threatening, Hospitalization, Disabling, Other)
  Sender: FDA-Public Use
  Company Number: None

PATIENT
  Age: 20 Year
  Sex: Female
  Weight: 72.5755 kg

DRUGS (2)
  1. LISINOPRIL [Suspect]
     Indication: HYPERTENSION
     Dosage: 10 MG DAILY PO
     Route: 048
     Dates: start: 20070111, end: 20070219
  2. DILTIAZEM [Suspect]
     Indication: HYPERTENSION
     Dosage: 240 MG DAILY PO
     Route: 048
     Dates: start: 20070111, end: 20070224

REACTIONS (6)
  - ASTHENIA [None]
  - BLOOD PRESSURE DECREASED [None]
  - BRADYCARDIA [None]
  - DYSPNOEA [None]
  - FATIGUE [None]
  - NODAL RHYTHM [None]
